FAERS Safety Report 19146965 (Version 8)
Quarter: 2021Q4

REPORT INFORMATION
  Report Type: Report from Study
  Country: CA (occurrence: CA)
  Receive Date: 20210416
  Receipt Date: 20211217
  Transmission Date: 20220303
  Serious: Yes (Death, Hospitalization, Other)
  Sender: FDA-Public Use
  Company Number: CA-OTSUKA-2021_012645

PATIENT
  Age: 84 Year
  Sex: Male

DRUGS (2)
  1. CEDAZURIDINE\DECITABINE [Suspect]
     Active Substance: CEDAZURIDINE\DECITABINE
     Indication: Myelodysplastic syndrome
     Dosage: 35 MG OF DECITABINE AND 100 MG OF CEDAZURIDINE), QD FOR 5 DAYS
     Route: 048
     Dates: start: 20210101
  2. CEDAZURIDINE\DECITABINE [Suspect]
     Active Substance: CEDAZURIDINE\DECITABINE
     Dosage: 35 MG OF DECITABINE AND 100 MG OF CEDAZURIDINE), QD FOR 3 DAYS
     Route: 065

REACTIONS (10)
  - Death [Fatal]
  - Chest pain [Unknown]
  - Transfusion [Unknown]
  - Pain in extremity [Unknown]
  - Staphylococcal infection [Not Recovered/Not Resolved]
  - Dyspnoea [Unknown]
  - Gait disturbance [Unknown]
  - Asthenia [Unknown]
  - Fatigue [Unknown]
  - Product use issue [Unknown]

NARRATIVE: CASE EVENT DATE: 20210409
